FAERS Safety Report 18918731 (Version 1)
Quarter: 2021Q1

REPORT INFORMATION
  Report Type: Report from Study
  Country: DE (occurrence: DE)
  Receive Date: 20210220
  Receipt Date: 20210220
  Transmission Date: 20210420
  Serious: Yes (Life-Threatening, Disabling, Other)
  Sender: FDA-Public Use
  Company Number: DE-AUROBINDO-AUR-APL-2021-006822

PATIENT
  Sex: Male

DRUGS (8)
  1. CYCLOPHOSPHAMIDE. [Suspect]
     Active Substance: CYCLOPHOSPHAMIDE
     Indication: B-CELL LYMPHOMA
     Dosage: 1335 MILLIGRAM ONCE (1?0?0)
     Route: 042
     Dates: start: 20141023, end: 20141023
  2. MABTHERA [Suspect]
     Active Substance: RITUXIMAB
     Indication: B-CELL LYMPHOMA
     Dosage: 670 MILLIGRAM ONCE (1?0?0)
     Route: 042
     Dates: start: 20141124, end: 20141124
  3. METHOTREXATE. [Suspect]
     Active Substance: METHOTREXATE
     Indication: B-CELL LYMPHOMA
     Dosage: 2000 MILLIGRAM ONCE (1?0?0)
     Route: 042
     Dates: start: 20141111, end: 20141111
  4. NEULASTA [Suspect]
     Active Substance: PEGFILGRASTIM
     Indication: B-CELL LYMPHOMA
     Dosage: 6 MILLIGRAM ONCE(1?0?0)
     Route: 058
     Dates: start: 20141026, end: 20141026
  5. LEUCOVORIN. [Suspect]
     Active Substance: LEUCOVORIN
     Indication: B-CELL LYMPHOMA
     Dosage: 25 MILLIGRAM ONCE (1?0?0)
     Route: 065
     Dates: start: 20141112, end: 20141114
  6. VINCRISTINE SULFATE LIPOSOME INJECTION [Suspect]
     Active Substance: VINCRISTINE SULFATE
     Indication: B-CELL LYMPHOMA
     Dosage: 3.56 MILLIGRAM ONCE(1?0?0)
     Route: 042
     Dates: start: 20141023, end: 20141023
  7. DOXORUBICIN [Suspect]
     Active Substance: DOXORUBICIN
     Indication: B-CELL LYMPHOMA
     Dosage: 90 MILLIGRAM ONCE (1?0?0)
     Route: 042
     Dates: start: 20141023, end: 20141023
  8. PREDNISOLONE. [Suspect]
     Active Substance: PREDNISOLONE
     Indication: B-CELL LYMPHOMA
     Dosage: 100 MILLIGRAM  ONCE(1?0?0)
     Route: 048
     Dates: start: 20141023, end: 20141023

REACTIONS (1)
  - Congestive cardiomyopathy [Recovered/Resolved with Sequelae]

NARRATIVE: CASE EVENT DATE: 20150824
